FAERS Safety Report 11878267 (Version 2)
Quarter: 2016Q1

REPORT INFORMATION
  Report Type: Spontaneous
  Country: US (occurrence: US)
  Receive Date: 20151230
  Receipt Date: 20160215
  Transmission Date: 20160526
  Serious: No
  Sender: FDA-Public Use
  Company Number: US-009507513-1512USA013544

PATIENT
  Age: 63 Year
  Sex: Female

DRUGS (1)
  1. KEYTRUDA [Suspect]
     Active Substance: PEMBROLIZUMAB
     Indication: BREAST CANCER
     Dosage: 2 MG/KG, Q3W
     Route: 042
     Dates: start: 20151221

REACTIONS (2)
  - Therapeutic response unexpected [Unknown]
  - Product use issue [Unknown]

NARRATIVE: CASE EVENT DATE: 20151221
